FAERS Safety Report 21742261 (Version 1)
Quarter: 2022Q4

REPORT INFORMATION
  Report Type: Spontaneous
  Country: US (occurrence: None)
  Receive Date: 20221216
  Receipt Date: 20221216
  Transmission Date: 20230112
  Serious: Yes (Hospitalization)
  Sender: FDA-Public Use
  Company Number: None

PATIENT
  Age: 33 Year
  Sex: Male
  Weight: 78.2 kg

DRUGS (8)
  1. CYCLOPHOSPHAMIDE [Suspect]
     Active Substance: CYCLOPHOSPHAMIDE
     Dates: end: 20210907
  2. CYTARABINE [Suspect]
     Active Substance: CYTARABINE
     Dates: end: 20210907
  3. DEXAMETHASONE [Suspect]
     Active Substance: DEXAMETHASONE
     Dates: end: 20210907
  4. DOXORUBICIN HYDROCHLORIDE [Suspect]
     Active Substance: DOXORUBICIN HYDROCHLORIDE
     Dates: end: 20210907
  5. MESNA [Suspect]
     Active Substance: MESNA
     Dates: end: 20210907
  6. METHOTREXATE [Suspect]
     Active Substance: METHOTREXATE
     Dosage: OTHER QUANTITY : 1.625 G;?
     Dates: end: 20210803
  7. PONATINIB [Suspect]
     Active Substance: PONATINIB
     Dates: end: 20210913
  8. VINCRISTINE SULFATE [Suspect]
     Active Substance: VINCRISTINE SULFATE
     Dates: end: 20210907

REACTIONS (12)
  - Nausea [None]
  - Vomiting [None]
  - Diarrhoea [None]
  - Abdominal pain [None]
  - Enterocolitis [None]
  - Pneumonia [None]
  - Neuropathy peripheral [None]
  - Pleural effusion [None]
  - Blindness [None]
  - Dizziness [None]
  - Papilloedema [None]
  - Optic neuritis [None]

NARRATIVE: CASE EVENT DATE: 20220913
